FAERS Safety Report 17842003 (Version 2)
Quarter: 2021Q1

REPORT INFORMATION
  Report Type: Spontaneous
  Country: US (occurrence: US)
  Receive Date: 20200529
  Receipt Date: 20210302
  Transmission Date: 20210419
  Serious: Yes (Hospitalization, Other)
  Sender: FDA-Public Use
  Company Number: US-ASTRAZENECA-2020SE69051

PATIENT
  Age: 19938 Day
  Sex: Male
  Weight: 122.5 kg

DRUGS (53)
  1. MINOCYCLINE [Concomitant]
     Active Substance: MINOCYCLINE HYDROCHLORIDE
     Indication: INFECTION
  2. LIPITOR [Concomitant]
     Active Substance: ATORVASTATIN CALCIUM
  3. FOLIC ACID. [Concomitant]
     Active Substance: FOLIC ACID
  4. DIPHENHYDRAMINE. [Concomitant]
     Active Substance: DIPHENHYDRAMINE
  5. GLIMEPIRIDE. [Concomitant]
     Active Substance: GLIMEPIRIDE
     Indication: DIABETES MELLITUS
  6. FERROUS SULF [Concomitant]
     Active Substance: FERROUS SULFATE
     Indication: IRON DEFICIENCY
  7. PAROXETINE. [Concomitant]
     Active Substance: PAROXETINE
  8. TERBINAFINE. [Concomitant]
     Active Substance: TERBINAFINE
  9. IPRATROPIUM [Concomitant]
     Active Substance: IPRATROPIUM
  10. ONDANSETRON [Concomitant]
     Active Substance: ONDANSETRON
  11. ALBUTEROL. [Concomitant]
     Active Substance: ALBUTEROL
  12. REGLAN [Concomitant]
     Active Substance: METOCLOPRAMIDE HYDROCHLORIDE
  13. OMEPRAZOLE,SODIUM BICARBONATE [Suspect]
     Active Substance: OMEPRAZOLE\SODIUM BICARBONATE
     Route: 065
  14. VALSARTAN. [Concomitant]
     Active Substance: VALSARTAN
  15. METAPROBL [Concomitant]
     Indication: CARDIAC DISORDER
  16. ZANTAC [Concomitant]
     Active Substance: RANITIDINE HYDROCHLORIDE
  17. NABUMETONE. [Concomitant]
     Active Substance: NABUMETONE
  18. NAPROXEN. [Concomitant]
     Active Substance: NAPROXEN
  19. NIACIN. [Concomitant]
     Active Substance: NIACIN
  20. ACETAMINOPHEN/OXYCODONE [Concomitant]
     Active Substance: ACETAMINOPHEN\OXYCODONE HYDROCHLORIDE
  21. ATIVAN [Concomitant]
     Active Substance: LORAZEPAM
  22. NEXIUM [Suspect]
     Active Substance: ESOMEPRAZOLE MAGNESIUM
     Route: 048
     Dates: start: 2000, end: 2010
  23. FUROSEMIDE. [Concomitant]
     Active Substance: FUROSEMIDE
  24. XARELTO [Concomitant]
     Active Substance: RIVAROXABAN
  25. ROSUVASTATIN. [Concomitant]
     Active Substance: ROSUVASTATIN
  26. TIZANIDINE. [Concomitant]
     Active Substance: TIZANIDINE
     Indication: MUSCLE DISORDER
  27. ALPRAZOLAM. [Concomitant]
     Active Substance: ALPRAZOLAM
  28. GABAPENTIN. [Concomitant]
     Active Substance: GABAPENTIN
  29. LISINOPRIL. [Concomitant]
     Active Substance: LISINOPRIL
  30. MECLIZINE [Concomitant]
     Active Substance: MECLIZINE HYDROCHLORIDE
  31. NOVOLIN NOS [Concomitant]
     Active Substance: INSULIN HUMAN
  32. METOPROLOL SUCC [Concomitant]
     Active Substance: METOPROLOL SUCCINATE
  33. FENOFIBRATE. [Concomitant]
     Active Substance: FENOFIBRATE
  34. HYDROCODONE [Concomitant]
     Active Substance: HYDROCODONE
     Indication: PAIN
  35. RANITIDINE. [Concomitant]
     Active Substance: RANITIDINE
     Dosage: GENERIC
  36. PLAVIX [Concomitant]
     Active Substance: CLOPIDOGREL BISULFATE
  37. CARVEDILOL. [Concomitant]
     Active Substance: CARVEDILOL
  38. ENOXAPARIN [Concomitant]
     Active Substance: ENOXAPARIN
  39. LOPERAMIDE [Concomitant]
     Active Substance: LOPERAMIDE
  40. KAYEXALATE [Concomitant]
     Active Substance: SODIUM POLYSTYRENE SULFONATE
  41. TYLENOL [Concomitant]
     Active Substance: ACETAMINOPHEN
     Indication: PAIN
  42. SIMVASTATIN. [Concomitant]
     Active Substance: SIMVASTATIN
  43. ZOLPIDEM [Concomitant]
     Active Substance: ZOLPIDEM TARTRATE
  44. AMOXICILLIN. [Concomitant]
     Active Substance: AMOXICILLIN
  45. ASPIRIN. [Concomitant]
     Active Substance: ASPIRIN
     Dates: start: 20130629
  46. ENALAPRIL [Concomitant]
     Active Substance: ENALAPRIL
  47. INSULIN LISPRO [Concomitant]
     Active Substance: INSULIN LISPRO
  48. PRILOSEC [Suspect]
     Active Substance: OMEPRAZOLE MAGNESIUM
     Route: 048
  49. PRILOSEC [Suspect]
     Active Substance: OMEPRAZOLE MAGNESIUM
     Dosage: GENERIC40.0MG UNKNOWN
     Route: 065
  50. METFORMIN [Concomitant]
     Active Substance: METFORMIN HYDROCHLORIDE
  51. NIZATIDINE. [Concomitant]
     Active Substance: NIZATIDINE
  52. WARFARIN [Concomitant]
     Active Substance: WARFARIN
  53. PANTOPRAZOLE [Concomitant]
     Active Substance: PANTOPRAZOLE

REACTIONS (4)
  - Electrolyte imbalance [Unknown]
  - Chronic kidney disease [Unknown]
  - Renal failure [Not Recovered/Not Resolved]
  - Acute kidney injury [Unknown]

NARRATIVE: CASE EVENT DATE: 20110719
